FAERS Safety Report 7085915-0 (Version None)
Quarter: 2010Q4

REPORT INFORMATION
  Report Type: 
  Country: None (occurrence: None)
  Receive Date: 20101105
  Receipt Date: 20101026
  Transmission Date: 20110411
  Serious: Yes (Other)
  Sender: FDA-Public Use
  Company Number: GB-JNJFOC-20101007504

PATIENT
  Age: 17 Year
  Sex: Female

DRUGS (4)
  1. CONCERTA [Suspect]
     Indication: ATTENTION DEFICIT/HYPERACTIVITY DISORDER
     Route: 048
  2. CONCERTA [Suspect]
     Route: 048
  3. FLUOXETINE [Suspect]
     Indication: ILL-DEFINED DISORDER
     Route: 065
  4. FLUOXETINE [Suspect]
     Route: 065

REACTIONS (4)
  - AGGRESSION [None]
  - ANXIETY [None]
  - SELF INJURIOUS BEHAVIOUR [None]
  - SUICIDAL IDEATION [None]
